FAERS Safety Report 8129637-3 (Version None)
Quarter: 2012Q1

REPORT INFORMATION
  Report Type: 
  Country: None (occurrence: None)
  Receive Date: 20120103
  Receipt Date: 20111106
  Transmission Date: 20120608
  Serious: No
  Sender: FDA-Public Use
  Company Number: AE-2011-003128

PATIENT
  Age: 55 Year
  Sex: Female
  Weight: 58.0604 kg

DRUGS (4)
  1. MULTIVITAMIN [Concomitant]
  2. RIBAVIRIN [Concomitant]
  3. INCIVEK [Suspect]
     Dosage: 2250 MG (750 MG, 3 IN 1 D), ORAL
     Route: 048
     Dates: start: 20110930
  4. PEGINTERFERON (PEGINTERFERON ALFA-2A) [Concomitant]

REACTIONS (8)
  - AGITATION [None]
  - DYSPNOEA [None]
  - PYREXIA [None]
  - FEELING ABNORMAL [None]
  - HYPERSOMNIA [None]
  - CHILLS [None]
  - FATIGUE [None]
  - DEPRESSED MOOD [None]
